FAERS Safety Report 4272887-7 (Version None)
Quarter: 2004Q1

REPORT INFORMATION
  Report Type: 
  Country: None (occurrence: None)
  Receive Date: 20040114
  Receipt Date: 20031229
  Transmission Date: 20041129
  Serious: Yes (Disabling, Other)
  Sender: FDA-Public Use
  Company Number: 2003IM000241

PATIENT
  Age: 83 Year
  Sex: Male

DRUGS (1)
  1. ACTIMMUNE [Suspect]
     Dosage: 200 UG;TIW;SUBCUTANEOUS
     Route: 058
     Dates: start: 20030108, end: 20030228

REACTIONS (2)
  - AGGRESSION [None]
  - INCOHERENT [None]
